FAERS Safety Report 7269329-6 (Version None)
Quarter: 2011Q1

REPORT INFORMATION
  Report Type: 
  Country: None (occurrence: None)
  Receive Date: 20110202
  Receipt Date: 20110121
  Transmission Date: 20110831
  Serious: Yes (Other)
  Sender: FDA-Public Use
  Company Number: JP-JNJFOC-20110106583

PATIENT
  Age: 48 Year
  Sex: Male

DRUGS (2)
  1. UNKNOWN MEDICATION [Concomitant]
  2. FINIBAX [Suspect]
     Indication: PRODUCT USED FOR UNKNOWN INDICATION
     Route: 041

REACTIONS (1)
  - LIVER DISORDER [None]
